FAERS Safety Report 11030350 (Version 2)
Quarter: 2015Q2

REPORT INFORMATION
  Report Type: Spontaneous
  Country: US (occurrence: None)
  Receive Date: 20150413
  Receipt Date: 20150501
  Transmission Date: 20150821
  Serious: Yes (Other)
  Sender: FDA-Public Use
  Company Number: ADR-2015-00689

PATIENT
  Sex: Female

DRUGS (3)
  1. LIORESAL [Suspect]
     Active Substance: BACLOFEN
     Indication: MUSCLE SPASTICITY
     Dosage: 650 MCG/DAY
  2. VALIUM [Suspect]
     Active Substance: DIAZEPAM
  3. ZANAFLEX [Suspect]
     Active Substance: TIZANIDINE HYDROCHLORIDE

REACTIONS (6)
  - Discomfort [None]
  - Hysterectomy [None]
  - Posturing [None]
  - Scoliosis [None]
  - Nephrolithiasis [None]
  - Pain [None]
